FAERS Safety Report 22287559 (Version 2)
Quarter: 2023Q2

REPORT INFORMATION
  Report Type: Spontaneous
  Country: CN (occurrence: CN)
  Receive Date: 20230505
  Receipt Date: 20230510
  Transmission Date: 20230721
  Serious: Yes (Hospitalization, Other)
  Sender: FDA-Public Use
  Company Number: CN-BAXTER-2023BAX020442

PATIENT
  Sex: Male

DRUGS (3)
  1. EXTRANEAL [Suspect]
     Active Substance: CALCIUM CHLORIDE\ICODEXTRIN\MAGNESIUM CHLORIDE\SODIUM CHLORIDE\SODIUM LACTATE
     Indication: IgA nephropathy
     Dosage: 1 BAG EVERY 4 DAYS AT THE BEGINNING
     Route: 033
     Dates: start: 20221031
  2. EXTRANEAL [Suspect]
     Active Substance: CALCIUM CHLORIDE\ICODEXTRIN\MAGNESIUM CHLORIDE\SODIUM CHLORIDE\SODIUM LACTATE
     Dosage: 1 BAG FOR EVERY 2 DAYS (FREQUENCY INCRREASED)
     Route: 033
  3. EXTRANEAL [Suspect]
     Active Substance: CALCIUM CHLORIDE\ICODEXTRIN\MAGNESIUM CHLORIDE\SODIUM CHLORIDE\SODIUM LACTATE
     Dosage: 1 BAG EVERY DAY (FREQUENCY INCRREASED)
     Route: 033

REACTIONS (5)
  - Anhidrosis [Recovered/Resolved]
  - Ultrafiltration failure [Not Recovered/Not Resolved]
  - Hypertension [Recovered/Resolved]
  - Discomfort [Unknown]
  - Influenza [Unknown]

NARRATIVE: CASE EVENT DATE: 20230318
